FAERS Safety Report 12768692 (Version 1)
Quarter: 2016Q3

REPORT INFORMATION
  Report Type: Spontaneous
  Country: JP (occurrence: JP)
  Receive Date: 20160921
  Receipt Date: 20160921
  Transmission Date: 20161109
  Serious: Yes (Hospitalization, Other)
  Sender: FDA-Public Use
  Company Number: JP-BAYER-2016-163635

PATIENT
  Age: 25 Year
  Sex: Female
  Weight: 51.4 kg

DRUGS (4)
  1. CRAVIT [Concomitant]
     Active Substance: LEVOFLOXACIN
     Indication: CYSTITIS
     Dosage: DAILY DOSE 500 MG
     Route: 048
     Dates: start: 20160706, end: 20160710
  2. GASTER [Suspect]
     Active Substance: FAMOTIDINE
     Indication: NAUSEA
     Dosage: DAILY DOSE 20 MG
     Route: 048
     Dates: start: 20160714, end: 20160721
  3. YAZ [Suspect]
     Active Substance: DROSPIRENONE\ETHINYL ESTRADIOL
     Indication: DYSMENORRHOEA
     Dosage: 1 DF, QD
     Route: 048
     Dates: start: 20160705, end: 20160721
  4. MIGSIS [Concomitant]
     Active Substance: LOMERIZINE HYDROCHLORIDE
     Dosage: DAILY DOSE 10 MG
     Route: 048
     Dates: start: 20160223

REACTIONS (3)
  - Vomiting [Recovered/Resolved]
  - Nausea [Recovered/Resolved]
  - Liver disorder [Recovered/Resolved]

NARRATIVE: CASE EVENT DATE: 20160721
